FAERS Safety Report 9776134 (Version 1)
Quarter: 2013Q4

REPORT INFORMATION
  Report Type: Spontaneous
  Country: BR (occurrence: BR)
  Receive Date: 20131220
  Receipt Date: 20131220
  Transmission Date: 20140711
  Serious: Yes (Other)
  Sender: FDA-Public Use
  Company Number: BR-009507513-1312BRA008351

PATIENT
  Sex: Female
  Weight: 60 kg

DRUGS (2)
  1. MERCILON [Suspect]
     Indication: CONTRACEPTION
     Dosage: 1 DF, QD
     Route: 048
     Dates: start: 2003
  2. MERCILON [Suspect]
     Dosage: 1 DF, QD
     Route: 048

REACTIONS (4)
  - Caesarean section [Recovered/Resolved]
  - Labour complication [Recovered/Resolved]
  - Anxiety [Recovering/Resolving]
  - Maternal exposure before pregnancy [Unknown]
